FAERS Safety Report 8839161 (Version 1)
Quarter: 2012Q4

REPORT INFORMATION
  Report Type: 
  Country: US (occurrence: US)
  Receive Date: 20121015
  Receipt Date: 20121015
  Transmission Date: 20130627
  Serious: No
  Sender: FDA-Public Use
  Company Number: US-009507513-1210USA003556

PATIENT
  Age: 27 None
  Sex: Female
  Weight: 58.96 kg

DRUGS (1)
  1. IMPLANON [Suspect]
     Indication: CONTRACEPTION
     Dosage: 1 standard dose of 1
     Dates: start: 20120629, end: 20120709

REACTIONS (2)
  - Pain in extremity [Recovering/Resolving]
  - Medical device complication [Unknown]
